FAERS Safety Report 4883131-1 (Version None)
Quarter: 2006Q1

REPORT INFORMATION
  Report Type: 
  Country: None (occurrence: None)
  Receive Date: 20060117
  Receipt Date: 20060117
  Transmission Date: 20060701
  Serious: Yes (Other)
  Sender: FDA-Public Use
  Company Number: None

PATIENT
  Age: 63 Year
  Sex: Male
  Weight: 64.8644 kg

DRUGS (12)
  1. TAXOTERE [Suspect]
     Indication: SMALL CELL LUNG CANCER STAGE UNSPECIFIED
     Dosage: 45.5 MG   QWKX3 IN 4 WEEK CY    IV DRIP
     Route: 041
     Dates: start: 20050817, end: 20051116
  2. TARGRETIN [Suspect]
     Dosage: 10 TABS  QD  PO
     Route: 048
     Dates: start: 20050817, end: 20051123
  3. LOVENOX [Concomitant]
  4. GENERAL LAX [Concomitant]
  5. MEGACE [Concomitant]
  6. PROTONIX [Concomitant]
  7. REGALN [Concomitant]
  8. OXYCONTIN [Concomitant]
  9. ARANESP [Concomitant]
  10. CALCIUM GLUCONATE [Concomitant]
  11. CENTRUM [Concomitant]
  12. DILTIAZEM HCL [Concomitant]

REACTIONS (2)
  - FATIGUE [None]
  - LYMPHOPENIA [None]
